FAERS Safety Report 17045751 (Version 3)
Quarter: 2019Q4

REPORT INFORMATION
  Report Type: Spontaneous
  Country: US (occurrence: US)
  Receive Date: 20191118
  Receipt Date: 20191231
  Transmission Date: 20200122
  Serious: No
  Sender: FDA-Public Use
  Company Number: NVSC2019US038481

PATIENT
  Sex: Female

DRUGS (1)
  1. PIQRAY [Suspect]
     Active Substance: ALPELISIB
     Indication: PRODUCT USED FOR UNKNOWN INDICATION
     Dosage: UNK
     Route: 048

REACTIONS (9)
  - Blood glucose increased [Unknown]
  - Stomatitis [Not Recovered/Not Resolved]
  - Abdominal discomfort [Unknown]
  - Rash [Recovered/Resolved]
  - Fatigue [Unknown]
  - Sticky skin [Unknown]
  - Oral candidiasis [Unknown]
  - Hyperglycaemia [Unknown]
  - Rash [Unknown]
